FAERS Safety Report 21785034 (Version 1)
Quarter: 2022Q4

REPORT INFORMATION
  Report Type: Spontaneous
  Country: US (occurrence: US)
  Receive Date: 20221227
  Receipt Date: 20221227
  Transmission Date: 20230113
  Serious: Yes (Other)
  Sender: FDA-Public Use
  Company Number: US-PFIZER INC-202201391461

PATIENT
  Age: 68 Year
  Sex: Female
  Weight: 40.82 kg

DRUGS (1)
  1. XELJANZ [Suspect]
     Active Substance: TOFACITINIB CITRATE
     Dosage: UNK

REACTIONS (5)
  - Large intestine perforation [Unknown]
  - Weight decreased [Unknown]
  - Squamous cell carcinoma of skin [Unknown]
  - Localised infection [Unknown]
  - Product label issue [Unknown]
